FAERS Safety Report 8118941 (Version 3)
Quarter: 2013Q4

REPORT INFORMATION
  Report Type: Report from Study
  Country: CA (occurrence: CA)
  Receive Date: 20110902
  Receipt Date: 20131203
  Transmission Date: 20140711
  Serious: Yes (Other)
  Sender: FDA-Public Use
  Company Number: PHHY2011CA75414

PATIENT
  Sex: Female

DRUGS (5)
  1. ACLASTA [Suspect]
     Indication: OSTEOPOROSIS
     Dosage: UKN
     Route: 042
     Dates: start: 20080924
  2. ACLASTA [Suspect]
     Dosage: UKN
     Route: 042
     Dates: start: 20091016
  3. ACLASTA [Suspect]
     Dosage: UKN
     Route: 042
     Dates: start: 20100922
  4. ACLASTA [Suspect]
     Dosage: UKN
     Route: 042
     Dates: start: 20111026
  5. ACLASTA [Suspect]
     Dosage: UKN
     Route: 042
     Dates: start: 20121012

REACTIONS (3)
  - Lung neoplasm malignant [Unknown]
  - Lung neoplasm [Unknown]
  - Urinary tract infection [Unknown]
